FAERS Safety Report 10058476 (Version 1)
Quarter: 2014Q2

REPORT INFORMATION
  Report Type: Spontaneous
  Country: US (occurrence: US)
  Receive Date: 20140404
  Receipt Date: 20140404
  Transmission Date: 20141212
  Serious: Yes (Death, Other)
  Sender: FDA-Public Use
  Company Number: PHEH2014US006417

PATIENT
  Age: 51 Year
  Sex: Male

DRUGS (2)
  1. TASIGNA [Suspect]
     Indication: CHRONIC MYELOID LEUKAEMIA
     Dosage: 200 MG, Q72H
     Route: 048
  2. TASIGNA [Suspect]
     Dosage: UNK
     Route: 048

REACTIONS (3)
  - Death [Fatal]
  - Cardiac failure congestive [Unknown]
  - Liver function test abnormal [Unknown]
